FAERS Safety Report 22621284 (Version 2)
Quarter: 2023Q4

REPORT INFORMATION
  Report Type: Report from Study
  Country: CN (occurrence: CN)
  Receive Date: 20230620
  Receipt Date: 20231122
  Transmission Date: 20240110
  Serious: Yes (Other)
  Sender: FDA-Public Use
  Company Number: CN-PFIZER INC-PV202300104341

PATIENT
  Age: 10 Month
  Sex: Male

DRUGS (3)
  1. DOXORUBICIN HYDROCHLORIDE [Suspect]
     Active Substance: DOXORUBICIN HYDROCHLORIDE
     Indication: Inflammatory myofibroblastic tumour
     Dosage: 30 MG/M2 OR 1.0 MG/KG IF {12 KG, D1-2, INTERVAL OF 21 DAYS
     Route: 042
  2. VINCRISTINE [Suspect]
     Active Substance: VINCRISTINE
     Indication: Inflammatory myofibroblastic tumour
     Dosage: 1.5 MG/M2 (DMAX 2MG) OR 0.5 MG/KG IF {12 KG, D1, INTERVAL OF 21 DAYS, ROUTE: ^PUSH^
  3. CYCLOPHOSPHAMIDE [Suspect]
     Active Substance: CYCLOPHOSPHAMIDE
     Indication: Inflammatory myofibroblastic tumour
     Dosage: 1.2 G/M2 OR 40 MG/KG IF { 12 KG, D1, INTERVAL OF 21 DAYS
     Route: 042

REACTIONS (2)
  - Myelosuppression [Unknown]
  - Febrile neutropenia [Unknown]
